FAERS Safety Report 22355989 (Version 1)
Quarter: 2023Q2

REPORT INFORMATION
  Report Type: Spontaneous
  Country: CA (occurrence: CA)
  Receive Date: 20230523
  Receipt Date: 20230523
  Transmission Date: 20230722
  Serious: Yes (Hospitalization)
  Sender: FDA-Public Use
  Company Number: CA-AMGEN-CANSP2022229771

PATIENT
  Sex: Male
  Weight: 2.317 kg

DRUGS (1)
  1. AVSOLA [Suspect]
     Active Substance: INFLIXIMAB-AXXQ
     Indication: Exposure during pregnancy
     Dosage: 400 MILLIGRAM, Q4WK
     Route: 063

REACTIONS (2)
  - Oxygen saturation decreased [Unknown]
  - Foetal exposure timing unspecified [Unknown]
